FAERS Safety Report 4450666-5 (Version None)
Quarter: 2004Q3

REPORT INFORMATION
  Report Type: 
  Country: None (occurrence: None)
  Receive Date: 20040914
  Receipt Date: 20040914
  Transmission Date: 20050211
  Serious: Yes (Hospitalization)
  Sender: FDA-Public Use
  Company Number: None

PATIENT
  Sex: Female
  Weight: 73.4827 kg

DRUGS (8)
  1. IRESSA [Suspect]
     Indication: PANCREATIC CARCINOMA
     Dosage: 250 MG ORALLY EVERYDAY
     Route: 048
     Dates: start: 20040723, end: 20040910
  2. SYNTHROID [Concomitant]
  3. MAXZIDE [Concomitant]
  4. PROTONIX [Concomitant]
  5. PERCOCET [Concomitant]
  6. CENTRUM [Concomitant]
  7. XANAX [Concomitant]
  8. AMBIEN [Concomitant]

REACTIONS (7)
  - ABDOMINAL PAIN [None]
  - HEPATIC FAILURE [None]
  - MENTAL STATUS CHANGES [None]
  - OEDEMA [None]
  - SKIN ULCER [None]
  - TENDERNESS [None]
  - URINARY TRACT INFECTION [None]
